FAERS Safety Report 8260083-8 (Version None)
Quarter: 2012Q2

REPORT INFORMATION
  Report Type: 
  Country: None (occurrence: None)
  Receive Date: 20120404
  Receipt Date: 20120330
  Transmission Date: 20120825
  Serious: Yes (Hospitalization)
  Sender: FDA-Public Use
  Company Number: US-JNJFOC-20120400314

PATIENT
  Sex: Female
  Weight: 68.04 kg

DRUGS (2)
  1. TRAMADOL HCL [Suspect]
     Indication: PRODUCT USED FOR UNKNOWN INDICATION
     Route: 065
  2. ULTRAM [Suspect]
     Indication: PAIN
     Route: 048
     Dates: end: 20120328

REACTIONS (6)
  - CONFUSIONAL STATE [None]
  - AGITATION [None]
  - COMPRESSION FRACTURE [None]
  - HALLUCINATION, AUDITORY [None]
  - FALL [None]
  - HALLUCINATION, VISUAL [None]
